FAERS Safety Report 6882399-X (Version None)
Quarter: 2010Q3

REPORT INFORMATION
  Report Type: 
  Country: None (occurrence: None)
  Receive Date: 20100729
  Receipt Date: 20090803
  Transmission Date: 20110219
  Serious: No
  Sender: FDA-Public Use
  Company Number: US-MYLANLABS-2009S1013927

PATIENT
  Age: 64 Year
  Sex: Female
  Weight: 50.35 kg

DRUGS (4)
  1. TRIAMTERENE AND HYDROCHLOROTHIAZIDE [Suspect]
     Indication: BLOOD PRESSURE INCREASED
     Route: 048
     Dates: start: 20090526, end: 20090718
  2. TRIAMTERENE AND HYDROCHLOROTHIAZIDE [Suspect]
     Route: 048
     Dates: start: 20090526, end: 20090718
  3. MULTI-VITAMIN [Concomitant]
  4. CALCIUM [Concomitant]

REACTIONS (11)
  - BLOOD BILIRUBIN INCREASED [None]
  - CHROMATURIA [None]
  - DECREASED APPETITE [None]
  - FAECES DISCOLOURED [None]
  - FATIGUE [None]
  - JAUNDICE [None]
  - NAUSEA [None]
  - PRURITUS [None]
  - RASH [None]
  - VISION BLURRED [None]
  - WEIGHT DECREASED [None]
